FAERS Safety Report 8008451-3 (Version None)
Quarter: 2011Q4

REPORT INFORMATION
  Report Type: 
  Country: None (occurrence: None)
  Receive Date: 20111227
  Receipt Date: 20111216
  Transmission Date: 20120403
  Serious: No
  Sender: FDA-Public Use
  Company Number: US-BAYER-2011-121725

PATIENT
  Sex: Female

DRUGS (4)
  1. SYNTHROID [Concomitant]
  2. ALEVE (CAPLET) [Suspect]
     Indication: PAIN IN EXTREMITY
  3. ALEVE (CAPLET) [Suspect]
     Indication: ANALGESIC THERAPY
     Dosage: 1 DF, PRN
  4. LIPITOR [Concomitant]

REACTIONS (1)
  - PAIN IN EXTREMITY [None]
